FAERS Safety Report 6032733-8 (Version None)
Quarter: 2009Q1

REPORT INFORMATION
  Report Type: 
  Country: None (occurrence: None)
  Receive Date: 20090107
  Receipt Date: 20081224
  Transmission Date: 20090719
  Serious: Yes (Other)
  Sender: FDA-Public Use
  Company Number: 2008AP003594

PATIENT
  Age: 36 Week
  Sex: Female
  Weight: 2.27 kg

DRUGS (2)
  1. CITALOPRAM HYDROBROMIDE [Suspect]
     Dosage: 40 MG; QD; TRPL
     Route: 064
  2. ONDANSETRON HYDROCHLORIDE [Suspect]
     Dosage: 4 MG;BID;TRPL
     Route: 064

REACTIONS (14)
  - APGAR SCORE LOW [None]
  - AUTONOMIC NERVOUS SYSTEM IMBALANCE [None]
  - DRUG INTERACTION [None]
  - DRUG WITHDRAWAL SYNDROME NEONATAL [None]
  - EXTRAPYRAMIDAL DISORDER [None]
  - GRUNTING [None]
  - HYPERTONIA NEONATAL [None]
  - MATERNAL DRUGS AFFECTING FOETUS [None]
  - METABOLIC ACIDOSIS [None]
  - NEONATAL DISORDER [None]
  - NEONATAL RESPIRATORY DISTRESS SYNDROME [None]
  - NERVOUS SYSTEM DISORDER [None]
  - PUPILLARY REFLEX IMPAIRED [None]
  - SMALL FOR DATES BABY [None]
